FAERS Safety Report 9465269 (Version 1)
Quarter: 2013Q3

REPORT INFORMATION
  Report Type: Report from Study
  Country: DE (occurrence: DE)
  Receive Date: 20130819
  Receipt Date: 20130819
  Transmission Date: 20140515
  Serious: No
  Sender: FDA-Public Use
  Company Number: PHHY2013DE089006

PATIENT
  Sex: Female

DRUGS (6)
  1. AMN107 [Suspect]
     Indication: CHRONIC MYELOID LEUKAEMIA
     Dosage: 600 MG, PER DAY
     Route: 048
     Dates: start: 20120623
  2. AMN107 [Suspect]
     Dosage: 600 MG, PER DAY
     Route: 048
     Dates: start: 20130617
  3. L THYROXIN [Concomitant]
     Dosage: 75 UG, UNK
  4. AMLODIPINE [Concomitant]
     Dosage: 5 MG, UNK
  5. PANTOZOL [Concomitant]
     Dosage: 20 MG, UNK
  6. LOPERAMID [Concomitant]
     Dosage: 2 CAPSULES, UNK

REACTIONS (1)
  - Diarrhoea [Recovered/Resolved]
